FAERS Safety Report 24987311 (Version 1)
Quarter: 2025Q1

REPORT INFORMATION
  Report Type: Spontaneous
  Country: US (occurrence: US)
  Receive Date: 20250219
  Receipt Date: 20250219
  Transmission Date: 20250408
  Serious: Yes (Other)
  Sender: PFIZER
  Company Number: US-PFIZER INC-202500036025

PATIENT
  Age: 58 Year
  Sex: Male

DRUGS (13)
  1. XELJANZ XR [Suspect]
     Active Substance: TOFACITINIB CITRATE
     Dosage: 11 MG, DAILY
     Route: 048
     Dates: start: 20241118
  2. AMLODIPINE BESYLATE [Concomitant]
     Active Substance: AMLODIPINE BESYLATE
  3. FAMOTIDINE [Concomitant]
     Active Substance: FAMOTIDINE
  4. LOW DOSE ASPIRIN [Concomitant]
     Active Substance: ASPIRIN
  5. MONTELUKAST [Concomitant]
     Active Substance: MONTELUKAST
  6. METHOCARBAMOL [Concomitant]
     Active Substance: METHOCARBAMOL
  7. OMEGA-E [Concomitant]
  8. OMEPRAZOLE [Concomitant]
     Active Substance: OMEPRAZOLE
  9. PREDNISONE [Concomitant]
     Active Substance: PREDNISONE
  10. RAMIPRIL [Concomitant]
     Active Substance: RAMIPRIL
  11. SIMVASTATIN [Concomitant]
     Active Substance: SIMVASTATIN
  12. TRAMADOL [Concomitant]
     Active Substance: TRAMADOL
  13. ZYRTEC [Concomitant]
     Active Substance: CETIRIZINE HYDROCHLORIDE

REACTIONS (5)
  - Respiratory tract infection [Recovering/Resolving]
  - Influenza [Recovering/Resolving]
  - Asthenia [Unknown]
  - Nausea [Unknown]
  - Vomiting [Unknown]
